FAERS Safety Report 5881871-9 (Version None)
Quarter: 2008Q3

REPORT INFORMATION
  Report Type: 
  Country: None (occurrence: None)
  Receive Date: 20080912
  Receipt Date: 20080715
  Transmission Date: 20090109
  Serious: No
  Sender: FDA-Public Use
  Company Number: US-ABBOTT-08P-163-0464022-00

PATIENT
  Sex: Female
  Weight: 65.83 kg

DRUGS (4)
  1. HUMIRA [Suspect]
     Indication: POLYMYOSITIS
     Route: 058
     Dates: start: 20080301
  2. HUMIRA [Suspect]
     Route: 058
     Dates: start: 20040101, end: 20080301
  3. METHOTREXATE [Concomitant]
     Indication: POLYMYOSITIS
     Dosage: 3 - 2.5MG PILLS WEEKLY
     Route: 048
     Dates: start: 20080301
  4. PREDNISONE TAB [Concomitant]
     Indication: POLYMYOSITIS
     Route: 048
     Dates: start: 20080301

REACTIONS (2)
  - INJECTION SITE HAEMATOMA [None]
  - INJECTION SITE IRRITATION [None]
